FAERS Safety Report 5447461-7 (Version None)
Quarter: 2007Q3

REPORT INFORMATION
  Report Type: 
  Country: None (occurrence: None)
  Receive Date: 20070905
  Receipt Date: 20070426
  Transmission Date: 20080115
  Serious: Yes (Death)
  Sender: FDA-Public Use
  Company Number: GXKR2007JP02692

PATIENT
  Age: 54 Year
  Sex: Male

DRUGS (8)
  1. RIFAMPICIN [Suspect]
     Indication: PULMONARY TUBERCULOSIS
     Dosage: 150 MG, QD, ORAL 300 MG, QD, ORAL 450 MG, QD, ORAL
     Route: 048
     Dates: start: 20070131, end: 20070201
  2. RIFAMPICIN [Suspect]
     Indication: PULMONARY TUBERCULOSIS
     Dosage: 150 MG, QD, ORAL 300 MG, QD, ORAL 450 MG, QD, ORAL
     Route: 048
     Dates: start: 20070201, end: 20070201
  3. RIFAMPICIN [Suspect]
     Indication: PULMONARY TUBERCULOSIS
     Dosage: 150 MG, QD, ORAL 300 MG, QD, ORAL 450 MG, QD, ORAL
     Route: 048
     Dates: start: 20070202, end: 20070204
  4. ETHAMBUTOL HYDROCHLORIDE [Concomitant]
  5. LEVOFLOXACIN [Concomitant]
  6. STREPTOMYCIN [Concomitant]
  7. MAGMITTO [Concomitant]
  8. NOVOLIN R [Concomitant]

REACTIONS (3)
  - INTERSTITIAL LUNG DISEASE [None]
  - LIVER DISORDER [None]
  - RESPIRATORY FAILURE [None]
